FAERS Safety Report 9831927 (Version 3)
Quarter: 2014Q1

REPORT INFORMATION
  Report Type: Spontaneous
  Country: US (occurrence: US)
  Receive Date: 20140121
  Receipt Date: 20140226
  Transmission Date: 20141002
  Serious: Yes (Death)
  Sender: FDA-Public Use
  Company Number: US-PFIZER INC-2014015293

PATIENT
  Age: 57 Year
  Sex: Male

DRUGS (8)
  1. CAMPTOSAR [Suspect]
     Indication: RECTAL CANCER STAGE IV
     Dosage: 420 MG, CYCLIC, DAY 1 EVERY 21 DAYS
     Route: 042
     Dates: start: 20130911, end: 20130911
  2. CAMPTOSAR [Suspect]
     Dosage: 320 MG, CYCLIC, DAY 1 EVERY 21 DAYS
     Dates: start: 20131015, end: 20131015
  3. ZALTRAP [Concomitant]
     Indication: COLORECTAL CANCER
     Dosage: UNK
     Dates: start: 20130911, end: 20131015
  4. XELODA [Concomitant]
     Indication: RECTAL CANCER
     Dosage: UNK
     Dates: start: 20130911, end: 20131015
  5. OXYCONTIN [Concomitant]
  6. OXYCODONE [Concomitant]
  7. NEURONTIN [Concomitant]
  8. LOMOTIL [Concomitant]

REACTIONS (4)
  - Disease progression [Fatal]
  - Rectal cancer [Fatal]
  - Anaemia [Not Recovered/Not Resolved]
  - Failure to thrive [Unknown]
